FAERS Safety Report 24882968 (Version 1)
Quarter: 2025Q1

REPORT INFORMATION
  Report Type: Spontaneous
  Country: US (occurrence: None)
  Receive Date: 20250124
  Receipt Date: 20250124
  Transmission Date: 20250409
  Serious: Yes (Hospitalization)
  Sender: FDA-CTU
  Company Number: None

PATIENT
  Age: 49 Year
  Sex: Male
  Weight: 77.3 kg

DRUGS (3)
  1. FILGRASTIM [Suspect]
     Active Substance: FILGRASTIM
     Dates: end: 20200210
  2. IFOSFAMIDE [Suspect]
     Active Substance: IFOSFAMIDE
     Dates: end: 20200201
  3. TAXOL [Suspect]
     Active Substance: PACLITAXEL
     Dates: end: 20200131

REACTIONS (2)
  - Staphylococcal infection [None]
  - Device related infection [None]

NARRATIVE: CASE EVENT DATE: 20200206
